FAERS Safety Report 10885807 (Version 1)
Quarter: 2015Q1

REPORT INFORMATION
  Report Type: Spontaneous
  Country: US (occurrence: US)
  Receive Date: 20150304
  Receipt Date: 20150304
  Transmission Date: 20150721
  Serious: Yes (Hospitalization)
  Sender: FDA-Public Use
  Company Number: US-ASTRAZENECA-2015SE18852

PATIENT

DRUGS (1)
  1. BRILINTA [Suspect]
     Active Substance: TICAGRELOR
     Indication: ACUTE CORONARY SYNDROME
     Route: 048
     Dates: start: 201502

REACTIONS (4)
  - Coronary artery occlusion [Unknown]
  - Device occlusion [Unknown]
  - Intentional product misuse [Unknown]
  - Infarction [Unknown]

NARRATIVE: CASE EVENT DATE: 20150221
